FAERS Safety Report 15300698 (Version 4)
Quarter: 2018Q3

REPORT INFORMATION
  Report Type: Spontaneous
  Country: DE (occurrence: DE)
  Receive Date: 20180821
  Receipt Date: 20180823
  Transmission Date: 20181010
  Serious: Yes (Hospitalization)
  Sender: FDA-Public Use
  Company Number: PHHY2018DE074578

PATIENT
  Age: 23 Year
  Sex: Male

DRUGS (5)
  1. METHYLPHENIDATE. [Suspect]
     Active Substance: METHYLPHENIDATE
     Dosage: 40 MG, QD (SLOW RELEASE STEADY DOSE SINCE SEVERAL YEARS)
     Route: 065
  2. QUETIAPINE. [Interacting]
     Active Substance: QUETIAPINE
     Indication: AGITATION
     Dosage: 25 MG, UNK (FIRST DAY FOLLOWED BY A 9?DAY TREATMENTWITH 50 MG QD)
     Route: 065
  3. QUETIAPINE. [Interacting]
     Active Substance: QUETIAPINE
     Dosage: 50 MG, UNK
     Route: 048
  4. METHYLPHENIDATE. [Interacting]
     Active Substance: METHYLPHENIDATE
     Indication: PRODUCT USED FOR UNKNOWN INDICATION
  5. QUETIAPINE. [Interacting]
     Active Substance: QUETIAPINE
     Dosage: 9?DAY TREATMENT WITH 50 MG PER DAY (MAXIMUM DAILY DOSE, 50 MG; CUMULATIVE DOSE, 500 MG
     Route: 048

REACTIONS (2)
  - Drug interaction [Recovered/Resolved]
  - Blood creatine phosphokinase increased [Recovered/Resolved]
